FAERS Safety Report 5564991-8 (Version None)
Quarter: 2007Q4

REPORT INFORMATION
  Report Type: 
  Country: None (occurrence: None)
  Receive Date: 20071218
  Receipt Date: 20071206
  Transmission Date: 20080405
  Serious: Yes (Death, Hospitalization)
  Sender: FDA-Public Use
  Company Number: US-JNJFOC-20071202627

PATIENT
  Age: 72 Year
  Sex: Female

DRUGS (1)
  1. DOXIL [Suspect]
     Indication: FALLOPIAN TUBE CANCER
     Route: 042

REACTIONS (4)
  - EXTRAVASATION [None]
  - FALLOPIAN TUBE CANCER [None]
  - HAEMATOMA [None]
  - SKIN NECROSIS [None]
